FAERS Safety Report 4839064-X (Version None)
Quarter: 2005Q4

REPORT INFORMATION
  Report Type: 
  Country: None (occurrence: None)
  Receive Date: 20051031
  Receipt Date: 20050817
  Transmission Date: 20060501
  Serious: No
  Sender: FDA-Public Use
  Company Number: 200516615US

PATIENT
  Age: 18 Year
  Sex: Female

DRUGS (1)
  1. KETEK [Suspect]
     Dosage: 400 MG BID PO
     Route: 048
     Dates: start: 20050812, end: 20050816

REACTIONS (2)
  - CONTUSION [None]
  - URTICARIA GENERALISED [None]
